FAERS Safety Report 17185054 (Version 1)
Quarter: 2019Q4

REPORT INFORMATION
  Report Type: Spontaneous
  Country: US (occurrence: US)
  Receive Date: 20191219
  Receipt Date: 20191219
  Transmission Date: 20200122
  Serious: No
  Sender: FDA-Public Use
  Company Number: None

PATIENT
  Age: 58 Year
  Sex: Female

DRUGS (9)
  1. LOSARTAN/HCT TAB 100-12.5 [Concomitant]
     Dates: start: 20190723
  2. SIMVASTATIN TAB 10MG [Concomitant]
     Active Substance: SIMVASTATIN
     Dates: start: 20170804
  3. METFORMIN [Concomitant]
     Active Substance: METFORMIN HYDROCHLORIDE
     Dates: start: 20190329
  4. FLONASE SPR 0.05% [Concomitant]
     Dates: start: 20170804
  5. HUMIRA [Suspect]
     Active Substance: ADALIMUMAB
     Indication: RHEUMATOID ARTHRITIS
     Dosage: ?          OTHER FREQUENCY:EVERY 2 WEEKS;?
     Route: 058
     Dates: start: 20170812
  6. LOSARTAN POT TAB 100MG [Concomitant]
     Dates: start: 20170804
  7. PREDNISONE TAB 5MG [Concomitant]
     Active Substance: PREDNISONE
     Dates: start: 20180201
  8. CALCIUM TAB 600MG [Concomitant]
     Dates: start: 20170804
  9. ALEVE TAB 220MG [Concomitant]
     Dates: start: 20170804

REACTIONS (2)
  - Sinusitis [None]
  - Rheumatoid arthritis [None]

NARRATIVE: CASE EVENT DATE: 20191115
